FAERS Safety Report 25302365 (Version 2)
Quarter: 2025Q2

REPORT INFORMATION
  Report Type: Spontaneous
  Country: US (occurrence: US)
  Receive Date: 20250512
  Receipt Date: 20250523
  Transmission Date: 20250716
  Serious: Yes (Other)
  Sender: ROCHE
  Company Number: US-ROCHE-10000280687

PATIENT
  Sex: Male
  Weight: 120.66 kg

DRUGS (3)
  1. XOLAIR PFS [Suspect]
     Active Substance: OMALIZUMAB
     Indication: Asthma
     Dosage: STRENGTH: 150 MG/ML
     Route: 058
     Dates: start: 201912
  2. XOLAIR PFS [Suspect]
     Active Substance: OMALIZUMAB
  3. DOXEPIN [Concomitant]
     Active Substance: DOXEPIN

REACTIONS (1)
  - Anaphylactic reaction [Unknown]
